FAERS Safety Report 8477305-0 (Version None)
Quarter: 2012Q2

REPORT INFORMATION
  Report Type: 
  Country: None (occurrence: None)
  Receive Date: 20120629
  Receipt Date: 20120619
  Transmission Date: 20120825
  Serious: Yes (Other)
  Sender: FDA-Public Use
  Company Number: ZA-JNJFOC-20120610335

PATIENT
  Age: 3 Decade
  Sex: Male

DRUGS (2)
  1. CONCERTA [Suspect]
     Indication: PRODUCT USED FOR UNKNOWN INDICATION
     Route: 048
  2. CONCERTA [Suspect]
     Route: 048

REACTIONS (3)
  - DRUG DIVERSION [None]
  - HYPERVENTILATION [None]
  - INSOMNIA [None]
